FAERS Safety Report 5508046-7 (Version None)
Quarter: 2007Q4

REPORT INFORMATION
  Report Type: 
  Country: None (occurrence: None)
  Receive Date: 20071106
  Receipt Date: 20071029
  Transmission Date: 20080405
  Serious: Yes (Hospitalization)
  Sender: FDA-Public Use
  Company Number: DE-PFIZER INC-2007091630

PATIENT
  Age: 81 Year
  Sex: Male

DRUGS (3)
  1. REVATIO [Suspect]
     Indication: PULMONARY EMBOLISM
     Route: 048
     Dates: start: 20070401, end: 20071028
  2. MARCUMAR [Concomitant]
     Route: 048
  3. TAMSULOSIN HCL [Concomitant]
     Route: 048

REACTIONS (1)
  - HAEMATURIA [None]
